FAERS Safety Report 13669217 (Version 1)
Quarter: 2017Q2

REPORT INFORMATION
  Report Type: Spontaneous
  Country: FR (occurrence: FR)
  Receive Date: 20170620
  Receipt Date: 20170620
  Transmission Date: 20170830
  Serious: Yes (Hospitalization)
  Sender: FDA-Public Use
  Company Number: FR-PFIZER INC-2017261651

PATIENT
  Age: 6 Year
  Sex: Female
  Weight: 20.5 kg

DRUGS (17)
  1. VINCRISTINE SULFATE. [Suspect]
     Active Substance: VINCRISTINE SULFATE
     Dosage: 1.5 MG/M2, CYCLIC
     Route: 042
     Dates: start: 20170504, end: 20170504
  2. DOXORUBICIN ACCORD [Suspect]
     Active Substance: DOXORUBICIN HYDROCHLORIDE
     Indication: NEPHROBLASTOMA
     Dosage: 41.5 MG, CYCLIC
     Route: 042
     Dates: start: 20170427
  3. SPASFON /00765801/ [Concomitant]
     Active Substance: PHLOROGLUCINOL\1,3,5-TRIMETHOXYBENZENE
     Indication: ABDOMINAL PAIN
     Dosage: UNK
  4. TOPALGIC (FRANCE) [Concomitant]
     Active Substance: TRAMADOL
     Dosage: UNK, AS NEEDED
  5. COSMEGEN [Suspect]
     Active Substance: DACTINOMYCIN
     Indication: NEPHROBLASTOMA
     Dosage: 925 UG, CYCLIC
     Route: 042
     Dates: start: 20170427
  6. PLITICAN [Concomitant]
     Active Substance: ALIZAPRIDE HYDROCHLORIDE
     Dosage: UNK
     Dates: start: 20170427
  7. BACTRIM [Concomitant]
     Active Substance: SULFAMETHOXAZOLE\TRIMETHOPRIM
     Dosage: 400 MG, THREE TIMES WEEKLY
  8. AMLOR [Concomitant]
     Active Substance: AMLODIPINE BESYLATE
     Dosage: 10 MG, DAILY
  9. FORLAX [Concomitant]
     Active Substance: POLYETHYLENE GLYCOL 4000
     Indication: CONSTIPATION
     Dosage: UNK
  10. ELUDRIL /02860401/ [Concomitant]
     Active Substance: CHLORHEXIDINE GLUCONATE\CHLOROBUTANOL
     Indication: THERAPEUTIC GARGLE
     Dosage: UNK
  11. BICARBONATE [Concomitant]
     Active Substance: BICARBONATE ION
     Indication: THERAPEUTIC GARGLE
     Dosage: UNK
  12. VINCRISTINE SULFATE. [Suspect]
     Active Substance: VINCRISTINE SULFATE
     Indication: NEPHROBLASTOMA
     Dosage: 1.25 MG, CYCLIC
     Route: 042
     Dates: start: 20170427, end: 20170427
  13. DOLIPRANE [Concomitant]
     Active Substance: ACETAMINOPHEN
     Dosage: UNK, AS NEEDED
  14. ZOPHREN [Concomitant]
     Active Substance: ONDANSETRON
     Indication: VOMITING
  15. EMLA [Concomitant]
     Active Substance: LIDOCAINE\PRILOCAINE
     Dosage: UNK
  16. FUNGIZONE [Concomitant]
     Active Substance: AMPHOTERICIN B
     Indication: THERAPEUTIC GARGLE
     Dosage: UNK
  17. ZOPHREN [Concomitant]
     Active Substance: ONDANSETRON
     Indication: NAUSEA
     Dosage: UNK
     Dates: start: 20170427

REACTIONS (1)
  - Intestinal obstruction [Recovered/Resolved]

NARRATIVE: CASE EVENT DATE: 20170504
